FAERS Safety Report 18076554 (Version 1)
Quarter: 2020Q3

REPORT INFORMATION
  Report Type: Spontaneous
  Country: US (occurrence: US)
  Receive Date: 20200727
  Receipt Date: 20200727
  Transmission Date: 20201103
  Serious: No
  Sender: FDA-Public Use
  Company Number: US-SEPTODONT-201905553

PATIENT
  Age: 20 Year
  Sex: Female

DRUGS (2)
  1. ORAVERSE [Suspect]
     Active Substance: PHENTOLAMINE MESYLATE
     Indication: ANAESTHESIA REVERSAL
     Dosage: IN THE DOSAGE OF ? ? 1 CARTRIDGE WAS ADMINISTERED AS DIRECTED
     Route: 004
     Dates: start: 20191015, end: 20191015
  2. SEPTOCAINE AND EPINEPHRINE [Suspect]
     Active Substance: ARTICAINE HYDROCHLORIDE\EPINEPHRINE BITARTRATE
     Indication: INFILTRATION ANAESTHESIA
     Dosage: ONE TO TWO (2) CARTRIDGES OR PORTIONS THEREOF
     Route: 004
     Dates: start: 20191015, end: 20191015

REACTIONS (1)
  - Post procedural swelling [Recovered/Resolved]

NARRATIVE: CASE EVENT DATE: 20191015
